FAERS Safety Report 12929548 (Version 1)
Quarter: 2016Q4

REPORT INFORMATION
  Report Type: Spontaneous
  Country: US (occurrence: US)
  Receive Date: 20161110
  Receipt Date: 20161110
  Transmission Date: 20170207
  Serious: No
  Sender: FDA-Public Use
  Company Number: US-TAKEDA-2016TUS020165

PATIENT
  Sex: Male

DRUGS (1)
  1. TRINTELLIX [Suspect]
     Active Substance: VORTIOXETINE HYDROBROMIDE
     Indication: MAJOR DEPRESSION
     Dosage: UNK, QD
     Route: 048

REACTIONS (7)
  - Wrong technique in product usage process [Recovered/Resolved]
  - Constipation [Unknown]
  - Akathisia [Recovered/Resolved]
  - Drug prescribing error [Recovered/Resolved]
  - Dizziness [Unknown]
  - Tremor [Recovered/Resolved]
  - Prescribed underdose [Recovered/Resolved]
